FAERS Safety Report 15208879 (Version 1)
Quarter: 2018Q3

REPORT INFORMATION
  Report Type: Spontaneous
  Country: US (occurrence: US)
  Receive Date: 20180727
  Receipt Date: 20180727
  Transmission Date: 20181010
  Serious: Yes (Other)
  Sender: FDA-Public Use
  Company Number: US-MYLANLABS-2018M1054881

PATIENT
  Sex: Female

DRUGS (3)
  1. ZYRTEC [Concomitant]
     Active Substance: CETIRIZINE HYDROCHLORIDE
     Indication: SEASONAL ALLERGY
     Dosage: UNK
  2. ATORVASTATIN [Concomitant]
     Active Substance: ATORVASTATIN
     Indication: BLOOD CHOLESTEROL
     Dosage: UNK
  3. VALSARTAN AND HYDROCHLOROTHIAZIDE TABLETS, USP [Suspect]
     Active Substance: HYDROCHLOROTHIAZIDE\VALSARTAN
     Indication: BLOOD PRESSURE MEASUREMENT
     Dosage: UNK
     Route: 048

REACTIONS (18)
  - Angioedema [Recovering/Resolving]
  - Asthma [Recovered/Resolved]
  - Skin exfoliation [Not Recovered/Not Resolved]
  - Feeling abnormal [Not Recovered/Not Resolved]
  - Eye pain [Not Recovered/Not Resolved]
  - Hypersensitivity [Recovering/Resolving]
  - Angina pectoris [Unknown]
  - General physical condition abnormal [Not Recovered/Not Resolved]
  - Urine analysis abnormal [Unknown]
  - Headache [Not Recovered/Not Resolved]
  - Nephrolithiasis [Unknown]
  - General physical health deterioration [Not Recovered/Not Resolved]
  - Facial pain [Not Recovered/Not Resolved]
  - Dyspnoea [Recovered/Resolved]
  - Eye swelling [Not Recovered/Not Resolved]
  - Confusional state [Not Recovered/Not Resolved]
  - Thinking abnormal [Not Recovered/Not Resolved]
  - Swelling face [Not Recovered/Not Resolved]
